FAERS Safety Report 24275261 (Version 1)
Quarter: 2024Q3

REPORT INFORMATION
  Report Type: Report from Study
  Country: US (occurrence: US)
  Receive Date: 20240903
  Receipt Date: 20240903
  Transmission Date: 20241017
  Serious: Yes (Other)
  Sender: JOHNSON AND JOHNSON
  Company Number: US-JNJFOC-20240877034

PATIENT
  Age: 24 Year
  Sex: Female

DRUGS (5)
  1. SPRAVATO [Suspect]
     Active Substance: ESKETAMINE
     Indication: Depression
     Dosage: ^^56 MG, 4 TOTAL DOSES^^
     Dates: start: 20231004, end: 20231018
  2. SPRAVATO [Suspect]
     Active Substance: ESKETAMINE
     Dosage: ^^84 MG, 9 TOTAL DOSES^^
     Dates: start: 20231020, end: 20231201
  3. SPRAVATO [Suspect]
     Active Substance: ESKETAMINE
     Dosage: ^^56 MG, 10 TOTAL DOSES^^
     Dates: start: 20231206, end: 20240222
  4. SPRAVATO [Suspect]
     Active Substance: ESKETAMINE
     Dosage: ^^84 MG, 24 TOTAL DOSES^^
     Dates: start: 20240229, end: 20240822
  5. SPRAVATO [Suspect]
     Active Substance: ESKETAMINE
     Dosage: ^^84 MG, 1 TOTAL DOSE^^, RECENT DOSE
     Dates: start: 20240827, end: 20240827

REACTIONS (1)
  - Seizure [Recovered/Resolved]

NARRATIVE: CASE EVENT DATE: 20240827
